FAERS Safety Report 4439532-9 (Version None)
Quarter: 2004Q3

REPORT INFORMATION
  Report Type: 
  Country: None (occurrence: None)
  Receive Date: 20040901
  Receipt Date: 20040901
  Transmission Date: 20050211
  Serious: Yes (Hospitalization)
  Sender: FDA-Public Use
  Company Number: None

PATIENT
  Sex: Female
  Weight: 86.1834 kg

DRUGS (2)
  1. ORTHO TRI-CYCLEN [Suspect]
     Indication: CONTRACEPTION
     Dosage: 1 PO QD
     Route: 048
  2. ZYRTEC [Concomitant]

REACTIONS (6)
  - ASTHENIA [None]
  - HEADACHE [None]
  - HYPERHIDROSIS [None]
  - NAUSEA [None]
  - PHARMACEUTICAL PRODUCT COMPLAINT [None]
  - TREMOR [None]
